FAERS Safety Report 6055353-8 (Version None)
Quarter: 2009Q1

REPORT INFORMATION
  Report Type: 
  Country: None (occurrence: None)
  Receive Date: 20090123
  Receipt Date: 20090114
  Transmission Date: 20090719
  Serious: Yes (Hospitalization)
  Sender: FDA-Public Use
  Company Number: 2008-03641

PATIENT
  Age: 73 Year
  Sex: Male
  Weight: 105.2 kg

DRUGS (16)
  1. VELCADE [Suspect]
     Indication: MULTIPLE MYELOMA
     Dosage: 1.3 MG/M2, IV BOLUS
     Route: 040
     Dates: start: 20080620, end: 20080627
  2. DEXAMETHASONE [Suspect]
     Indication: MULTIPLE MYELOMA
     Dosage: 20 MG, ORAL
     Route: 048
     Dates: end: 20080628
  3. POTASSIUM CHLORIDE [Concomitant]
  4. COUMADIN [Concomitant]
  5. FUROSEMIDE (FUROSEMIDE) [Concomitant]
  6. ENALAPRIL MALEATE [Concomitant]
  7. OLMESARTAN MEDOXOMIL [Concomitant]
  8. GLUCOPHAGE [Concomitant]
  9. COREG [Concomitant]
  10. HUMALOG [Concomitant]
  11. LANTUS [Concomitant]
  12. VANADYL SULFATE [Concomitant]
  13. CHROMIUM PICOLINATE (CHROMIUM PICOLINATE) [Concomitant]
  14. MULTI-OIL [Concomitant]
  15. CO-Q10 [Concomitant]
  16. MULTIVITAMINS (ERGOCALCIFEROL, PANTHENOL, NICOTINAMIDE, RIBOFLAVIN, TH [Concomitant]

REACTIONS (5)
  - ATRIAL FIBRILLATION [None]
  - CELLULITIS [None]
  - INTERNATIONAL NORMALISED RATIO ABNORMAL [None]
  - RENAL FAILURE ACUTE [None]
  - WHEELCHAIR USER [None]
